FAERS Safety Report 6885391-4 (Version None)
Quarter: 2010Q3

REPORT INFORMATION
  Report Type: 
  Country: None (occurrence: None)
  Receive Date: 20100729
  Receipt Date: 20080417
  Transmission Date: 20110219
  Serious: No
  Sender: FDA-Public Use
  Company Number: US-PFIZER INC-2008029547

PATIENT
  Sex: Female
  Weight: 72.7 kg

DRUGS (6)
  1. CELEBREX [Suspect]
     Indication: BACK PAIN
     Dates: start: 20080331
  2. CLONAZEPAM [Interacting]
  3. DEPAKOTE [Interacting]
     Indication: BIPOLAR DISORDER
  4. SKELAXIN [Interacting]
     Indication: BACK PAIN
     Dates: start: 20080331
  5. LEVOTHYROXINE SODIUM [Concomitant]
     Indication: THYROID DISORDER
  6. BENADRYL [Concomitant]

REACTIONS (2)
  - DRUG INTERACTION [None]
  - HEADACHE [None]
